FAERS Safety Report 16405029 (Version 1)
Quarter: 2019Q2

REPORT INFORMATION
  Report Type: Spontaneous
  Country: US (occurrence: US)
  Receive Date: 20190607
  Receipt Date: 20190607
  Transmission Date: 20190711
  Serious: No
  Sender: FDA-Public Use
  Company Number: US-ASTRAZENECA-2019SE71153

PATIENT
  Sex: Female

DRUGS (1)
  1. LYNPARZA [Suspect]
     Active Substance: OLAPARIB
     Indication: GASTRIC CANCER
     Route: 048

REACTIONS (4)
  - Nasopharyngitis [Unknown]
  - Product use in unapproved indication [Unknown]
  - Off label use [Unknown]
  - Influenza [Unknown]
